FAERS Safety Report 5780222-8 (Version None)
Quarter: 2008Q2

REPORT INFORMATION
  Report Type: 
  Country: None (occurrence: None)
  Receive Date: 20080620
  Receipt Date: 20080610
  Transmission Date: 20081010
  Serious: Yes (Hospitalization)
  Sender: FDA-Public Use
  Company Number: PHEH2008US05272

PATIENT
  Sex: Female

DRUGS (2)
  1. RECLAST [Suspect]
     Dosage: UNK
     Dates: start: 20080604, end: 20080604
  2. ANTI-ASTHMATICS [Concomitant]
     Dosage: THREE ASTHMA MEDICATIONS (UNSPECIFIED)
     Dates: start: 20080604

REACTIONS (3)
  - ASTHMA [None]
  - CHEST PAIN [None]
  - PYREXIA [None]
